FAERS Safety Report 4303302-2 (Version None)
Quarter: 2004Q1

REPORT INFORMATION
  Report Type: 
  Country: None (occurrence: None)
  Receive Date: 20040223
  Receipt Date: 20040210
  Transmission Date: 20041129
  Serious: Yes (Life-Threatening)
  Sender: FDA-Public Use
  Company Number: JP-JNJFOC-20040202719

PATIENT
  Age: 71 Year
  Sex: Female

DRUGS (4)
  1. REMICADE [Suspect]
     Indication: RHEUMATOID ARTHRITIS
     Dosage: IN 1 AS NECESSARY, INTRAVENOUS DRIP
     Route: 041
     Dates: start: 20031118, end: 20031118
  2. RHEUMATREX [Suspect]
     Indication: DRUG USE FOR UNKNOWN INDICATION
     Dosage: 6-8 MG A WEEK
  3. STEROID (CORTICOSTEROID NOS) [Suspect]
     Indication: DRUG USE FOR UNKNOWN INDICATION
  4. ARAVA [Suspect]
     Indication: RHEUMATOID ARTHRITIS

REACTIONS (4)
  - COLON CANCER RECURRENT [None]
  - DRUG INTERACTION [None]
  - HYDRONEPHROSIS [None]
  - THERAPEUTIC RESPONSE DECREASED [None]
